FAERS Safety Report 12204315 (Version 2)
Quarter: 2016Q1

REPORT INFORMATION
  Report Type: Spontaneous
  Country: RU (occurrence: RU)
  Receive Date: 20160323
  Receipt Date: 20160331
  Transmission Date: 20160526
  Serious: Yes (Hospitalization, Other)
  Sender: FDA-Public Use
  Company Number: RU-PFIZER INC-2016147033

PATIENT
  Age: 63 Year
  Sex: Male

DRUGS (2)
  1. SUTENT [Suspect]
     Active Substance: SUNITINIB MALATE
     Dosage: 50 MG, 1X/DAY, DURING 28 DAYS, 14 DAYS OFF
     Route: 048
     Dates: start: 20160311
  2. SUTENT [Suspect]
     Active Substance: SUNITINIB MALATE
     Indication: METASTATIC RENAL CELL CARCINOMA
     Dosage: 50 MG, 1X/DAY, DURING 28 DAYS, 14 DAYS OFF
     Dates: start: 20160113, end: 20160209

REACTIONS (21)
  - Bladder tamponade [Recovered/Resolved]
  - Haematuria [Recovered/Resolved]
  - Toothache [Recovered/Resolved]
  - Urinary retention [Recovered/Resolved]
  - Haemoptysis [Recovered/Resolved]
  - Dysgeusia [Recovered/Resolved]
  - Blood urine present [Recovered/Resolved]
  - Suspected counterfeit product [Unknown]
  - Oedema peripheral [Recovered/Resolved]
  - Eyelid oedema [Recovered/Resolved]
  - Arrhythmia [Recovered/Resolved]
  - Mucous membrane disorder [Recovered/Resolved]
  - Face oedema [Not Recovered/Not Resolved]
  - Haematuria [Recovered/Resolved]
  - Rash [Recovered/Resolved]
  - Face oedema [Not Recovered/Not Resolved]
  - Asthenia [Not Recovered/Not Resolved]
  - Oedema peripheral [Not Recovered/Not Resolved]
  - Ascites [Not Recovered/Not Resolved]
  - Dry skin [Not Recovered/Not Resolved]
  - Oedema [Recovered/Resolved]

NARRATIVE: CASE EVENT DATE: 20160113
